FAERS Safety Report 4421570-3 (Version None)
Quarter: 2004Q3

REPORT INFORMATION
  Report Type: 
  Country: None (occurrence: None)
  Receive Date: 20040804
  Receipt Date: 20040708
  Transmission Date: 20050211
  Serious: Yes (Hospitalization)
  Sender: FDA-Public Use
  Company Number: USA040772008

PATIENT
  Sex: Female
  Weight: 36 kg

DRUGS (2)
  1. FORTEO [Suspect]
     Indication: OSTEOPOROSIS
     Dosage: 20 UG/1 DAY
     Dates: start: 20040525
  2. CALCIUM WITH VITAMIN D [Concomitant]

REACTIONS (2)
  - BRONCHITIS [None]
  - PHARMACEUTICAL PRODUCT COMPLAINT [None]
